FAERS Safety Report 16434420 (Version 1)
Quarter: 2019Q2

REPORT INFORMATION
  Report Type: Spontaneous
  Country: US (occurrence: US)
  Receive Date: 20190614
  Receipt Date: 20190614
  Transmission Date: 20190711
  Serious: No
  Sender: FDA-Public Use
  Company Number: US-JNJFOC-20161016251

PATIENT
  Sex: Female
  Weight: 104.33 kg

DRUGS (1)
  1. DURAGESIC [Suspect]
     Active Substance: FENTANYL
     Indication: PAIN
     Route: 062
     Dates: start: 2010

REACTIONS (3)
  - Product dose omission [Unknown]
  - Product adhesion issue [Unknown]
  - Product complaint [Unknown]

NARRATIVE: CASE EVENT DATE: 2010
